FAERS Safety Report 8315320-8 (Version None)
Quarter: 2012Q2

REPORT INFORMATION
  Report Type: 
  Country: None (occurrence: None)
  Receive Date: 20120426
  Receipt Date: 20120417
  Transmission Date: 20120825
  Serious: Yes (Other)
  Sender: FDA-Public Use
  Company Number: US-ROXANE LABORATORIES, INC.-2012-RO-01084RO

PATIENT
  Age: 45 Year
  Sex: Male

DRUGS (3)
  1. TEMOZOLOMIDE [Suspect]
     Indication: CHEMOTHERAPY
  2. DEXAMETHASONE [Suspect]
     Dosage: 4 MG
  3. LEVETIRACETAM [Suspect]
     Indication: CONVULSION
     Dosage: 1000 MG
     Dates: start: 20110401, end: 20110601

REACTIONS (2)
  - RENAL FAILURE ACUTE [None]
  - TUBULOINTERSTITIAL NEPHRITIS [None]
